FAERS Safety Report 7156139-3 (Version None)
Quarter: 2010Q4

REPORT INFORMATION
  Report Type: 
  Country: None (occurrence: None)
  Receive Date: 20101123
  Receipt Date: 20100927
  Transmission Date: 20110411
  Serious: Yes (Hospitalization)
  Sender: FDA-Public Use
  Company Number: 018531

PATIENT
  Sex: Female
  Weight: 67.1 kg

DRUGS (8)
  1. CIMZIA [Suspect]
     Indication: RHEUMATOID ARTHRITIS
     Dosage: 200 MG 1X/2 WEEKS SUBCUTANEOUS
     Route: 058
     Dates: start: 20091001, end: 20100713
  2. LEVOTHYROXINE [Concomitant]
  3. LORATADINE [Concomitant]
  4. MELOXICAM [Concomitant]
  5. OMEPRAZOLE [Concomitant]
  6. ACTEAMINOPHEN [Concomitant]
  7. ACETAMINOPHEN AND HYDROCODONE BITARTRATE [Concomitant]
  8. KEFLEX [Suspect]
     Indication: CELLULITIS
     Dosage: 500 MG TID ORAL
     Dates: start: 20100809

REACTIONS (2)
  - ADVERSE DRUG REACTION [None]
  - SUBCUTANEOUS ABSCESS [None]
